FAERS Safety Report 5268222-8 (Version None)
Quarter: 2007Q1

REPORT INFORMATION
  Report Type: 
  Country: None (occurrence: None)
  Receive Date: 20070319
  Receipt Date: 20070314
  Transmission Date: 20070707
  Serious: Yes (Other)
  Sender: FDA-Public Use
  Company Number: DE-AVENTIS-200710674DE

PATIENT
  Age: 50 Year
  Sex: Female

DRUGS (2)
  1. TAXOTERE [Suspect]
     Route: 042
  2. ERBITUX [Concomitant]
     Dosage: DOSE: NOT REPORTED

REACTIONS (2)
  - CONFUSIONAL STATE [None]
  - NERVOUS SYSTEM DISORDER [None]
